FAERS Safety Report 20136903 (Version 1)
Quarter: 2021Q4

REPORT INFORMATION
  Report Type: Spontaneous
  Country: CN (occurrence: CN)
  Receive Date: 20211201
  Receipt Date: 20211201
  Transmission Date: 20220303
  Serious: Yes (Hospitalization, Other)
  Sender: FDA-Public Use
  Company Number: CN-ELI_LILLY_AND_COMPANY-CN202111010124

PATIENT
  Age: 55 Year
  Sex: Male
  Weight: 60 kg

DRUGS (3)
  1. HUMALOG [Suspect]
     Active Substance: INSULIN LISPRO
     Indication: Diabetes mellitus
     Dosage: 10 U, TID (MORNING, AT NOON AND NIGHT)
     Route: 058
  2. HUMALOG [Suspect]
     Active Substance: INSULIN LISPRO
     Dosage: 4 U, TID (MORNING, AT NOON AND NIGHT)
     Route: 058
  3. INSULIN LISPRO [Concomitant]
     Active Substance: INSULIN LISPRO
     Indication: Diabetes mellitus
     Dosage: UNK UNK, DAILY (QD)
     Route: 058

REACTIONS (2)
  - Diabetes mellitus inadequate control [Unknown]
  - Tuberculosis [Unknown]
